FAERS Safety Report 14218081 (Version 1)
Quarter: 2017Q4

REPORT INFORMATION
  Report Type: Report from Study
  Country: AR (occurrence: AR)
  Receive Date: 20171123
  Receipt Date: 20171123
  Transmission Date: 20180321
  Serious: Yes (Hospitalization)
  Sender: FDA-Public Use
  Company Number: AR-002147023-PHHY2017AR168460

PATIENT
  Sex: Female

DRUGS (1)
  1. RASILEZ D [Suspect]
     Active Substance: ALISKIREN\HYDROCHLOROTHIAZIDE
     Indication: HYPERTENSION
     Dosage: 300 OT, QD (IN THE MORNING), 5 YEARS AGO
     Route: 065

REACTIONS (2)
  - Malaise [Unknown]
  - Cerebrovascular accident [Recovering/Resolving]
